FAERS Safety Report 4429778-8 (Version None)
Quarter: 2004Q3

REPORT INFORMATION
  Report Type: 
  Country: None (occurrence: None)
  Receive Date: 20040816
  Receipt Date: 20040729
  Transmission Date: 20050211
  Serious: Yes (Other)
  Sender: FDA-Public Use
  Company Number: 202106

PATIENT
  Age: 28 Year

DRUGS (1)
  1. AVONEX [Suspect]
     Indication: MULTIPLE MYELOMA
     Dosage: 30 MCG QW IM
     Route: 030
     Dates: start: 20030101, end: 20040717

REACTIONS (2)
  - ANGIONEUROTIC OEDEMA [None]
  - EYELID OEDEMA [None]
